FAERS Safety Report 7688637-8 (Version None)
Quarter: 2011Q3

REPORT INFORMATION
  Report Type: 
  Country: None (occurrence: None)
  Receive Date: 20110817
  Receipt Date: 20110808
  Transmission Date: 20111222
  Serious: Yes (Other)
  Sender: FDA-Public Use
  Company Number: US-US-EMD SERONO, INC.-7076433

PATIENT
  Sex: Female

DRUGS (7)
  1. TOPAMAX [Concomitant]
  2. CORTEF [Concomitant]
  3. PROVERA [Concomitant]
  4. LORATADINE [Concomitant]
  5. SAIZEN [Suspect]
     Indication: SEPTO-OPTIC DYSPLASIA
     Route: 058
     Dates: start: 20091002
  6. LEVOTHYROXINE SODIUM [Concomitant]
  7. PREMARIN [Concomitant]

REACTIONS (2)
  - SUICIDAL IDEATION [None]
  - DEPRESSION [None]
